FAERS Safety Report 5150694-0 (Version None)
Quarter: 2006Q4

REPORT INFORMATION
  Report Type: 
  Country: None (occurrence: None)
  Receive Date: 20061114
  Receipt Date: 20061107
  Transmission Date: 20070319
  Serious: Yes (Disabling)
  Sender: FDA-Public Use
  Company Number: IT-JNJFOC-20060701877

PATIENT
  Age: 83 Year
  Sex: Male

DRUGS (2)
  1. PRIXAR [Suspect]
     Indication: CYSTITIS
     Route: 048
     Dates: start: 20060415, end: 20060416
  2. INSULIN [Concomitant]
     Route: 065

REACTIONS (3)
  - OPTIC NERVE NEOPLASM [None]
  - STRABISMUS [None]
  - VISUAL ACUITY REDUCED [None]
